FAERS Safety Report 4490063-X (Version None)
Quarter: 2004Q4

REPORT INFORMATION
  Report Type: 
  Country: None (occurrence: None)
  Receive Date: 20041027
  Receipt Date: 20041015
  Transmission Date: 20050328
  Serious: Yes (Hospitalization)
  Sender: FDA-Public Use
  Company Number: 2004-BP-09972RO

PATIENT
  Age: 45 Year
  Sex: Male

DRUGS (7)
  1. LEUCOVORIN CALCIUM [Suspect]
     Indication: RECTAL CANCER
     Dosage: 60 MG/DAY, PO
     Route: 048
     Dates: start: 20040529, end: 20040713
  2. LEUCOVORIN CALCIUM [Suspect]
     Indication: RECTAL CANCER
     Dosage: 60 MG/DAY, PO
     Route: 048
     Dates: start: 20040723
  3. UFT [Suspect]
     Indication: RECTAL CANCER
     Dosage: SEE IMAGE, PO
     Route: 048
     Dates: start: 20040529, end: 20040626
  4. UFT [Suspect]
     Indication: RECTAL CANCER
     Dosage: SEE IMAGE, PO
     Route: 048
     Dates: start: 20040702, end: 20040713
  5. UFT [Suspect]
     Indication: RECTAL CANCER
     Dosage: SEE IMAGE, PO
     Route: 048
     Dates: start: 20040723
  6. MAGNESIUM OXIDE (MAGNESIUM OXIDE) [Concomitant]
  7. DAI-KENCHU-TO (GINGER, GINSENG + JAPANESE PEPPER) (HERBAL PREPARATION) [Concomitant]

REACTIONS (1)
  - DIARRHOEA [None]
